FAERS Safety Report 8258353-2 (Version None)
Quarter: 2012Q1

REPORT INFORMATION
  Report Type: 
  Country: None (occurrence: None)
  Receive Date: 20120322
  Receipt Date: 20120203
  Transmission Date: 20120608
  Serious: Yes (Death)
  Sender: FDA-Public Use
  Company Number: UTC-014982

PATIENT
  Age: 62 Year
  Sex: Female

DRUGS (2)
  1. LETAIRIS [Concomitant]
  2. TYVASO [Suspect]
     Indication: SYSTEMIC SCLEROSIS
     Dosage: 18-54 MICROGRAMS,(4 IN 1 D) ,INHALATION
     Route: 055
     Dates: start: 20110408

REACTIONS (1)
  - INTERSTITIAL LUNG DISEASE [None]
